FAERS Safety Report 15784841 (Version 2)
Quarter: 2019Q1

REPORT INFORMATION
  Report Type: Spontaneous
  Country: CN (occurrence: CN)
  Receive Date: 20190103
  Receipt Date: 20190207
  Transmission Date: 20190417
  Serious: Yes (Other)
  Sender: FDA-Public Use
  Company Number: CN-ROCHE-2239079

PATIENT
  Age: 48 Year
  Sex: Female

DRUGS (9)
  1. OXALIPLATIN. [Concomitant]
     Active Substance: OXALIPLATIN
     Route: 042
     Dates: start: 20150505, end: 20150525
  2. IRINOTECAN [Concomitant]
     Active Substance: IRINOTECAN
     Indication: COLON CANCER METASTATIC
     Dosage: D3,Q21D
     Route: 042
     Dates: start: 20150505, end: 20150525
  3. AVASTIN [Suspect]
     Active Substance: BEVACIZUMAB
     Dosage: 05/MAY/2015, 29/MAY/2015, ON 23/JUN/2015, 14/JUL/2015 AND 05/AUG/2015
     Route: 042
     Dates: start: 20150529, end: 20150618
  4. OXALIPLATIN. [Concomitant]
     Active Substance: OXALIPLATIN
     Route: 042
     Dates: start: 20151026, end: 201603
  5. AVASTIN [Suspect]
     Active Substance: BEVACIZUMAB
     Indication: COLON CANCER METASTATIC
     Route: 042
     Dates: start: 20150414, end: 20150525
  6. OXALIPLATIN. [Concomitant]
     Active Substance: OXALIPLATIN
     Route: 042
     Dates: start: 20150529, end: 20150825
  7. 5-FLUOROURACIL [Concomitant]
     Active Substance: FLUOROURACIL
     Indication: COLON CANCER METASTATIC
     Route: 065
     Dates: start: 20150414, end: 20150825
  8. 5-FLUOROURACIL [Concomitant]
     Active Substance: FLUOROURACIL
     Route: 065
     Dates: start: 20151026, end: 201603
  9. OXALIPLATIN. [Concomitant]
     Active Substance: OXALIPLATIN
     Indication: COLON CANCER METASTATIC
     Route: 042
     Dates: start: 20150414, end: 20150504

REACTIONS (2)
  - Bone marrow failure [Recovering/Resolving]
  - Diarrhoea [Recovering/Resolving]
